FAERS Safety Report 6886008-5 (Version None)
Quarter: 2010Q3

REPORT INFORMATION
  Report Type: 
  Country: None (occurrence: None)
  Receive Date: 20100729
  Receipt Date: 20080625
  Transmission Date: 20110219
  Serious: No
  Sender: FDA-Public Use
  Company Number: US-PFIZER INC-2008053255

PATIENT
  Sex: Female
  Weight: 72.57 kg

DRUGS (2)
  1. ACCUPRIL [Suspect]
     Indication: HYPERTENSION
     Dates: start: 20080601, end: 20080601
  2. LIPITOR [Concomitant]

REACTIONS (1)
  - ALOPECIA [None]
